FAERS Safety Report 22392836 (Version 2)
Quarter: 2024Q1

REPORT INFORMATION
  Report Type: Spontaneous
  Country: US (occurrence: US)
  Receive Date: 20230601
  Receipt Date: 20240219
  Transmission Date: 20240410
  Serious: No
  Sender: FDA-Public Use
  Company Number: US-SA-SAC20230601000738

PATIENT
  Age: 38 Year
  Sex: Male

DRUGS (1)
  1. DUPIXENT [Suspect]
     Active Substance: DUPILUMAB
     Dosage: 300 MG FREQUENCY : OTHER
     Route: 058

REACTIONS (4)
  - Gastrooesophageal reflux disease [Unknown]
  - Dysphagia [Unknown]
  - Rosacea [Unknown]
  - Product dose omission in error [Unknown]
